FAERS Safety Report 13430264 (Version 1)
Quarter: 2017Q2

REPORT INFORMATION
  Report Type: Spontaneous
  Country: US (occurrence: US)
  Receive Date: 20170411
  Receipt Date: 20170411
  Transmission Date: 20170830
  Serious: No
  Sender: FDA-Public Use
  Company Number: None

PATIENT
  Sex: Male

DRUGS (1)
  1. STIVARGA [Suspect]
     Active Substance: REGORAFENIB
     Indication: GASTROINTESTINAL NEOPLASM
     Dosage: DAILY FOR 21 DAYS ON, 7 DAYS OFF
     Route: 048
     Dates: start: 20170314

REACTIONS (4)
  - Hypertension [None]
  - Refusal of treatment by patient [None]
  - Muscle spasms [None]
  - Dysphonia [None]
